FAERS Safety Report 20429895 (Version 2)
Quarter: 2025Q3

REPORT INFORMATION
  Report Type: Report from Study
  Country: EU (occurrence: EU)
  Receive Date: 20220204
  Receipt Date: 20250806
  Transmission Date: 20251021
  Serious: Yes (Life-Threatening, Hospitalization)
  Sender: SERVIER
  Company Number: EU-SERVIER-S18010987

PATIENT

DRUGS (25)
  1. PEGASPARGASE [Suspect]
     Active Substance: PEGASPARGASE
     Indication: Acute lymphocytic leukaemia
     Route: 042
     Dates: start: 20181008, end: 20181109
  2. VINCRISTINE SULFATE [Suspect]
     Active Substance: VINCRISTINE SULFATE
     Indication: Acute lymphocytic leukaemia
     Route: 042
     Dates: start: 20181008, end: 20181112
  3. CYCLOPHOSPHAMIDE [Suspect]
     Active Substance: CYCLOPHOSPHAMIDE
     Indication: Acute lymphocytic leukaemia
     Route: 042
     Dates: start: 20180924, end: 20181022
  4. CYTARABINE [Suspect]
     Active Substance: CYTARABINE
     Indication: Acute lymphocytic leukaemia
     Route: 042
     Dates: start: 20180926, end: 20181103
  5. CYTARABINE [Suspect]
     Active Substance: CYTARABINE
     Route: 037
     Dates: start: 20180926, end: 20181024
  6. MERCAPTOPURINE [Suspect]
     Active Substance: MERCAPTOPURINE
     Indication: Acute lymphocytic leukaemia
     Route: 048
     Dates: start: 20180924, end: 20181104
  7. HYDROCORTISONE [Suspect]
     Active Substance: HYDROCORTISONE
     Indication: Acute lymphocytic leukaemia
     Dosage: 15 MG, QD, D3, D31
     Route: 037
     Dates: start: 20180926, end: 20181024
  8. METHOTREXATE [Suspect]
     Active Substance: METHOTREXATE
     Indication: Acute lymphocytic leukaemia
     Route: 037
     Dates: start: 20180926, end: 20181024
  9. ONDANSETRON [Concomitant]
     Active Substance: ONDANSETRON
     Indication: Nausea
     Dosage: 15 MG, QD
     Route: 048
     Dates: start: 201808
  10. ONDANSETRON [Concomitant]
     Active Substance: ONDANSETRON
     Indication: Vomiting
  11. ALIZAPRIDE [Concomitant]
     Active Substance: ALIZAPRIDE
     Indication: Nausea
     Dosage: 15 MG, QD
     Route: 042
     Dates: start: 201808
  12. ALIZAPRIDE [Concomitant]
     Active Substance: ALIZAPRIDE
     Indication: Vomiting
  13. LANSOPRAZOLE [Concomitant]
     Active Substance: LANSOPRAZOLE
     Indication: Gastritis prophylaxis
     Dosage: 50 MG, QD
     Route: 048
     Dates: start: 201808
  14. CALCIUM CHLORIDE [Concomitant]
     Active Substance: CALCIUM CHLORIDE
     Indication: Prophylaxis
     Route: 048
     Dates: start: 201808
  15. NOMEGESTROL [Concomitant]
     Active Substance: NOMEGESTROL
     Indication: Contraception
     Dosage: 5 MG, QD
     Route: 048
     Dates: start: 201808
  16. ACETAMINOPHEN [Concomitant]
     Active Substance: ACETAMINOPHEN
     Indication: Pain
     Dosage: 2 G, QD
     Route: 048
     Dates: start: 201808
  17. ACETAMINOPHEN [Concomitant]
     Active Substance: ACETAMINOPHEN
     Indication: Pyrexia
  18. LACTULOSE [Concomitant]
     Active Substance: LACTULOSE
     Indication: Constipation
     Dosage: 20 MG, QD
     Route: 048
     Dates: start: 201808
  19. BACTRIM [Concomitant]
     Active Substance: SULFAMETHOXAZOLE\TRIMETHOPRIM
     Indication: Infection prophylaxis
     Route: 048
     Dates: start: 201808
  20. NALBUPHINE [Concomitant]
     Active Substance: NALBUPHINE
     Indication: Pain
     Dosage: 50 MG, QD
     Route: 042
     Dates: start: 201808
  21. VITAMIN K [Concomitant]
     Active Substance: PHYTONADIONE
     Indication: Prophylaxis
     Dosage: 10 MG, QD
     Route: 042
     Dates: start: 201808
  22. METOCLOPRAMIDE [Concomitant]
     Active Substance: METOCLOPRAMIDE
     Indication: Nausea
     Route: 042
     Dates: start: 201808
  23. METOCLOPRAMIDE [Concomitant]
     Active Substance: METOCLOPRAMIDE
     Indication: Vomiting
  24. TRAMADOL [Concomitant]
     Active Substance: TRAMADOL
     Indication: Pain
     Route: 048
     Dates: start: 201808
  25. AMITRIPTYLINE HYDROCHLORIDE [Concomitant]
     Active Substance: AMITRIPTYLINE HYDROCHLORIDE
     Indication: Depression
     Dosage: 8 MG, QD
     Route: 048
     Dates: start: 201808

REACTIONS (2)
  - Febrile neutropenia [Recovered/Resolved]
  - Escherichia bacteraemia [Recovered/Resolved]

NARRATIVE: CASE EVENT DATE: 20181116
